FAERS Safety Report 9515721 (Version 1)
Quarter: 2013Q1

REPORT INFORMATION
  Report Type: Spontaneous
  Country: US (occurrence: None)
  Receive Date: 20130305
  Receipt Date: 20130305
  Transmission Date: 20140127
  Serious: Yes (Other)
  Sender: FDA-Public Use
  Company Number: 163-21880-12050711

PATIENT
  Age: 71 Year
  Sex: Female
  Weight: 74.84 kg

DRUGS (6)
  1. REVLIMID (LENALIDOMIDE) (CAPSULE) [Suspect]
     Indication: PLASMA CELL MYELOMA
     Route: 048
     Dates: start: 20110414
  2. DEXAMETHASONE (DEXAMETHASONE) (UNKNOWN) [Concomitant]
  3. DILTIAZEM (DILTIAZEM) (UNKNOWN) (DILTIAZEM) [Concomitant]
  4. VITAMIN D (ERGOCALCIFEROL) (UNKNOWN) [Concomitant]
  5. WARFARIN (WARFARIN) (UNKNOWN) [Concomitant]
  6. ASA (ACETYLSALICYCLIC ACID) (UNKNOWN) [Concomitant]

REACTIONS (5)
  - Cataract [None]
  - Ocular hyperaemia [None]
  - Skin discolouration [None]
  - Vulvovaginal pruritus [None]
  - Skin exfoliation [None]
